FAERS Safety Report 15629110 (Version 2)
Quarter: 2018Q4

REPORT INFORMATION
  Report Type: Not Available
  Country: US (occurrence: US)
  Receive Date: 20181116
  Receipt Date: 20181211
  Transmission Date: 20190205
  Serious: No
  Sender: FDA-Public Use
  Company Number: US-NEUROCRINE BIOSCIENCES INC.-2018NBI03169

PATIENT
  Sex: Female

DRUGS (6)
  1. DIPHENHYDRAMINE. [Concomitant]
     Active Substance: DIPHENHYDRAMINE
     Indication: INSOMNIA
     Dosage: ONE TO TWO CAPSULES AT BEDTIME
  2. ESCITALOPRAM [Concomitant]
     Active Substance: ESCITALOPRAM OXALATE
     Indication: DEPRESSION
  3. INGREZZA [Suspect]
     Active Substance: VALBENAZINE
     Dates: start: 201811
  4. INGREZZA [Suspect]
     Active Substance: VALBENAZINE
     Indication: TARDIVE DYSKINESIA
     Dates: start: 201809, end: 2018
  5. LORAZEPAM. [Concomitant]
     Active Substance: LORAZEPAM
     Indication: ANXIETY
  6. INGREZZA [Suspect]
     Active Substance: VALBENAZINE
     Dates: start: 2018, end: 20181121

REACTIONS (1)
  - Sluggishness [Unknown]

NARRATIVE: CASE EVENT DATE: 2018
